FAERS Safety Report 7266357-1 (Version None)
Quarter: 2011Q1

REPORT INFORMATION
  Report Type: 
  Country: None (occurrence: None)
  Receive Date: 20110131
  Receipt Date: 20110125
  Transmission Date: 20110831
  Serious: Yes (Other)
  Sender: FDA-Public Use
  Company Number: FR-PFIZER INC-2011019658

PATIENT
  Age: 39 Year
  Sex: Female

DRUGS (1)
  1. CYTOTEC [Suspect]
     Indication: METRORRHAGIA
     Dosage: 400 UG, SINGLE
     Dates: start: 20061128, end: 20061128

REACTIONS (3)
  - ANTEPARTUM HAEMORRHAGE [None]
  - UTERINE LEIOMYOMA [None]
  - UTERINE CONTRACTIONS DURING PREGNANCY [None]
